FAERS Safety Report 16827630 (Version 2)
Quarter: 2019Q3

REPORT INFORMATION
  Report Type: Report from Study
  Country: US (occurrence: US)
  Receive Date: 20190919
  Receipt Date: 20190919
  Transmission Date: 20191005
  Serious: Yes (Other)
  Sender: FDA-Public Use
  Company Number: PHEH2019US037710

PATIENT
  Age: 59 Year
  Sex: Female

DRUGS (16)
  1. TRUSOPT [Suspect]
     Active Substance: DORZOLAMIDE HYDROCHLORIDE
     Indication: INTRAOCULAR PRESSURE INCREASED
     Dosage: BID
     Route: 047
     Dates: start: 2002, end: 2012
  2. LATANOPROST. [Suspect]
     Active Substance: LATANOPROST
     Indication: PRODUCT USED FOR UNKNOWN INDICATION
     Route: 065
  3. BETOPTIC [Suspect]
     Active Substance: BETAXOLOL HYDROCHLORIDE
     Indication: INTRAOCULAR PRESSURE INCREASED
     Dosage: UNK
     Route: 065
     Dates: start: 2010
  4. IOPIDINE [Suspect]
     Active Substance: APRACLONIDINE HYDROCHLORIDE
     Indication: INTRAOCULAR PRESSURE INCREASED
     Dosage: BID
     Route: 047
     Dates: start: 2002, end: 2005
  5. OCUPRESS [Suspect]
     Active Substance: CARTEOLOL HYDROCHLORIDE
     Indication: INTRAOCULAR PRESSURE INCREASED
     Dosage: UNK UNK, BID
     Route: 065
     Dates: start: 2002, end: 2004
  6. BRIMONIDINE TARTRATE. [Suspect]
     Active Substance: BRIMONIDINE TARTRATE
     Indication: PRODUCT USED FOR UNKNOWN INDICATION
     Route: 065
  7. BETAXOLOL HCL [Suspect]
     Active Substance: BETAXOLOL HYDROCHLORIDE
     Indication: PRODUCT USED FOR UNKNOWN INDICATION
     Dosage: BID
     Route: 065
     Dates: start: 2002
  8. TIMOPTIC [Suspect]
     Active Substance: TIMOLOL MALEATE
     Indication: INTRAOCULAR PRESSURE INCREASED
     Dosage: 1 GTT, QD (IN MORNING)
     Route: 065
     Dates: start: 2002, end: 2005
  9. XALATAN [Suspect]
     Active Substance: LATANOPROST
     Indication: INTRAOCULAR PRESSURE INCREASED
     Dosage: 1 GTT, QD (IN EVENING)
     Route: 065
     Dates: start: 2002, end: 2005
  10. ALPHAGAN P [Suspect]
     Active Substance: BRIMONIDINE TARTRATE
     Indication: PRODUCT USED FOR UNKNOWN INDICATION
     Dosage: UNK
     Route: 065
     Dates: start: 2002
  11. LUMIGAN [Suspect]
     Active Substance: BIMATOPROST
     Indication: PRODUCT USED FOR UNKNOWN INDICATION
     Dosage: QD (PM)
     Route: 065
     Dates: start: 2002
  12. NEPTAZANE [Suspect]
     Active Substance: METHAZOLAMIDE
     Indication: PRODUCT USED FOR UNKNOWN INDICATION
     Dosage: 50 MG, UNK
     Route: 065
     Dates: start: 2007, end: 2008
  13. AZOPT [Suspect]
     Active Substance: BRINZOLAMIDE
     Indication: INTRAOCULAR PRESSURE INCREASED
     Dosage: BID
     Route: 065
     Dates: start: 2004, end: 2004
  14. TRAVATAN [Suspect]
     Active Substance: TRAVOPROST
     Indication: INTRAOCULAR PRESSURE INCREASED
     Dosage: QHS
     Route: 065
     Dates: start: 2002, end: 2004
  15. DORZOLAMIDE+TIMOLOL [Suspect]
     Active Substance: DORZOLAMIDE\TIMOLOL
     Indication: PRODUCT USED FOR UNKNOWN INDICATION
     Route: 065
  16. COSOPT [Suspect]
     Active Substance: DORZOLAMIDE HYDROCHLORIDE\TIMOLOL MALEATE
     Indication: INTRAOCULAR PRESSURE INCREASED
     Dosage: UNK UNK, BID
     Route: 065
     Dates: start: 2002, end: 2008

REACTIONS (2)
  - Angle closure glaucoma [Not Recovered/Not Resolved]
  - Therapeutic response decreased [Unknown]

NARRATIVE: CASE EVENT DATE: 20020628
